FAERS Safety Report 10523928 (Version 1)
Quarter: 2014Q4

REPORT INFORMATION
  Report Type: Spontaneous
  Country: US (occurrence: None)
  Receive Date: 20141015
  Receipt Date: 20141015
  Transmission Date: 20150528
  Serious: Yes (Hospitalization, Disabling, Other)
  Sender: FDA-Public Use
  Company Number: None

PATIENT
  Age: 81 Year

DRUGS (16)
  1. AVODART [Concomitant]
     Active Substance: DUTASTERIDE
  2. ALLOPURINOL. [Concomitant]
     Active Substance: ALLOPURINOL
  3. SIMVASTATIN. [Concomitant]
     Active Substance: SIMVASTATIN
  4. ALFUZOSIN [Concomitant]
     Active Substance: ALFUZOSIN
  5. LEXAPRO [Concomitant]
     Active Substance: ESCITALOPRAM OXALATE
  6. LISINOPRIL. [Concomitant]
     Active Substance: LISINOPRIL
  7. AZELASTINE [Concomitant]
     Active Substance: AZELASTINE
  8. TRAZODONE [Concomitant]
     Active Substance: TRAZODONE HYDROCHLORIDE
  9. RISPERIDONE. [Suspect]
     Active Substance: RISPERIDONE
     Indication: INSOMNIA
     Dosage: 2 TABLETS AT BEDTIME TAKEN BY MOUTH
     Route: 048
     Dates: start: 20140312, end: 20140906
  10. GABAPENTIN. [Concomitant]
     Active Substance: GABAPENTIN
  11. ASPIRIN. [Concomitant]
     Active Substance: ASPIRIN
  12. VITAMIN B12 [Concomitant]
     Active Substance: CYANOCOBALAMIN
  13. LORAZEPAM. [Concomitant]
     Active Substance: LORAZEPAM
  14. VITAMIN B COMPLEX [Concomitant]
     Active Substance: CYANOCOBALAMIN\DEXPANTHENOL\NIACINAMIDE\PYRIDOXINE HYDROCHLORIDE\RIBOFLAVIN 5^-PHOSPHATE SODIUM\THIAMINE HYDROCHLORIDE\VITAMIN B COMPLEX
  15. RISPERIDONE. [Suspect]
     Active Substance: RISPERIDONE
     Indication: DEPRESSION
     Dosage: 2 TABLETS AT BEDTIME TAKEN BY MOUTH
     Route: 048
     Dates: start: 20140312, end: 20140906
  16. AZOPT [Concomitant]
     Active Substance: BRINZOLAMIDE

REACTIONS (15)
  - Mental status changes [None]
  - Akathisia [None]
  - Tremor [None]
  - Insomnia [None]
  - Dysgraphia [None]
  - Heart rate decreased [None]
  - Cognitive disorder [None]
  - Condition aggravated [None]
  - Restlessness [None]
  - Impaired driving ability [None]
  - Speech disorder [None]
  - Drug intolerance [None]
  - Activities of daily living impaired [None]
  - Anxiety [None]
  - Feeling abnormal [None]

NARRATIVE: CASE EVENT DATE: 20140806
